FAERS Safety Report 21555513 (Version 21)
Quarter: 2024Q2

REPORT INFORMATION
  Report Type: Report from Study
  Country: US (occurrence: US)
  Receive Date: 20221104
  Receipt Date: 20240605
  Transmission Date: 20240715
  Serious: Yes (Hospitalization, Other)
  Sender: FDA-Public Use
  Company Number: US-ABBVIE-4188027

PATIENT
  Age: 80 Year
  Sex: Female
  Weight: 68 kg

DRUGS (21)
  1. IMBRUVICA [Suspect]
     Active Substance: IBRUTINIB
     Indication: Chronic lymphocytic leukaemia
     Dosage: FORM STRENGTH :420 MILLIGRAM
     Route: 048
     Dates: start: 20221011, end: 20221011
  2. IMBRUVICA [Suspect]
     Active Substance: IBRUTINIB
     Indication: Chronic lymphocytic leukaemia
     Dosage: FORM STRENGTH :420 MILLIGRAM
     Route: 048
     Dates: start: 20221012
  3. IMBRUVICA [Suspect]
     Active Substance: IBRUTINIB
     Indication: Chronic lymphocytic leukaemia
     Dosage: FORM STRENGTH :420 MILLIGRAM
     Route: 048
     Dates: start: 20221012
  4. IMBRUVICA [Suspect]
     Active Substance: IBRUTINIB
     Indication: Chronic lymphocytic leukaemia
     Dosage: FORM STRENGTH :420 MILLIGRAM
     Route: 048
     Dates: start: 20221011, end: 20221011
  5. IMBRUVICA [Suspect]
     Active Substance: IBRUTINIB
     Indication: Chronic lymphocytic leukaemia
     Dosage: FORM STRENGTH- 420 MG
     Route: 048
  6. ALLOPURINOL [Concomitant]
     Active Substance: ALLOPURINOL
     Indication: Product used for unknown indication
  7. ASPIRIN [Concomitant]
     Active Substance: ASPIRIN
     Indication: Anticoagulant therapy
  8. ELIQUIS [Suspect]
     Active Substance: APIXABAN
     Indication: Product used for unknown indication
     Dosage: FORM STRENGTH: 5 MG?END DATE - JAN 2023
     Route: 065
     Dates: start: 20230101
  9. ELIQUIS [Suspect]
     Active Substance: APIXABAN
     Indication: Product used for unknown indication
     Dosage: FORM STRENGTH: 5 MG
     Route: 065
     Dates: end: 202210
  10. CITALOPRAM [Concomitant]
     Active Substance: CITALOPRAM\CITALOPRAM HYDROBROMIDE
     Indication: Product used for unknown indication
  11. MAGNESIUM [Concomitant]
     Active Substance: MAGNESIUM
     Indication: Product used for unknown indication
  12. LORATADINE [Concomitant]
     Active Substance: LORATADINE
     Indication: Product used for unknown indication
  13. ATORVASTATIN [Concomitant]
     Active Substance: ATORVASTATIN
     Indication: Blood cholesterol increased
  14. TELMISARTAN AND HYDROCHLOROTHIAZIDE [Concomitant]
     Active Substance: HYDROCHLOROTHIAZIDE\TELMISARTAN
     Indication: Hypertension
  15. CITALOPRAM [Concomitant]
     Active Substance: CITALOPRAM\CITALOPRAM HYDROBROMIDE
     Indication: Product used for unknown indication
  16. DIXONAL [Concomitant]
     Indication: Product used for unknown indication
     Dosage: FORM STRENGTH: 125 MILLIGRAM
     Route: 065
  17. METOPROLOL TARTRATE [Concomitant]
     Active Substance: METOPROLOL TARTRATE
     Indication: Cardiac disorder
     Dosage: TITRATE
     Route: 065
  18. MELATONIN [Concomitant]
     Active Substance: MELATONIN
     Indication: Sleep disorder
  19. DIGOXIN [Concomitant]
     Active Substance: DIGOXIN
     Indication: Cardiac disorder
  20. PLAVIX [Suspect]
     Active Substance: CLOPIDOGREL BISULFATE
     Indication: Anticoagulant therapy
     Route: 065
  21. CALCIUM [Concomitant]
     Active Substance: CALCIUM
     Indication: Product used for unknown indication

REACTIONS (24)
  - Gout [Unknown]
  - Diarrhoea [Not Recovered/Not Resolved]
  - Constipation [Not Recovered/Not Resolved]
  - Muscle spasms [Not Recovered/Not Resolved]
  - Haematoma [Recovered/Resolved]
  - Cardiac device implantation [Recovering/Resolving]
  - Pain in extremity [Recovering/Resolving]
  - White blood cell count decreased [Not Recovered/Not Resolved]
  - Haematoma [Recovered/Resolved]
  - Arrhythmia [Not Recovered/Not Resolved]
  - Tongue haematoma [Recovered/Resolved]
  - Bone pain [Recovered/Resolved]
  - Atrial appendage closure [Unknown]
  - Blood uric acid increased [Unknown]
  - Peripheral swelling [Unknown]
  - Haemoglobin decreased [Recovered/Resolved]
  - Oral contusion [Unknown]
  - Contusion [Unknown]
  - Paraesthesia [Unknown]
  - Muscular weakness [Unknown]
  - Bone pain [Recovering/Resolving]
  - Skin discolouration [Unknown]
  - Gait disturbance [Unknown]
  - Dizziness [Unknown]

NARRATIVE: CASE EVENT DATE: 20221001
